FAERS Safety Report 7163670-3 (Version None)
Quarter: 2010Q4

REPORT INFORMATION
  Report Type: 
  Country: None (occurrence: None)
  Receive Date: 20101215
  Receipt Date: 20100526
  Transmission Date: 20110411
  Serious: Yes (Other)
  Sender: FDA-Public Use
  Company Number: DE-PFIZER INC-2010051392

PATIENT
  Age: 45 Year
  Sex: Male
  Weight: 100 kg

DRUGS (2)
  1. LYRICA [Suspect]
     Indication: ANXIETY DISORDER
     Dosage: 5 MG, 1X/DAY
     Route: 048
     Dates: start: 20100322, end: 20100410
  2. CITALOPRAM [Concomitant]
     Indication: ANXIETY DISORDER
     Dosage: UNK
     Route: 048
     Dates: start: 20100410

REACTIONS (16)
  - AGITATION [None]
  - ANXIETY [None]
  - APATHY [None]
  - BLUNTED AFFECT [None]
  - CONFUSIONAL STATE [None]
  - DEPRESSED MOOD [None]
  - DISTURBANCE IN ATTENTION [None]
  - EUPHORIC MOOD [None]
  - FATIGUE [None]
  - IMPAIRED WORK ABILITY [None]
  - LIBIDO INCREASED [None]
  - MUSCLE TWITCHING [None]
  - MUSCULAR WEAKNESS [None]
  - RESTLESSNESS [None]
  - SLEEP DISORDER [None]
  - SOMNOLENCE [None]
